FAERS Safety Report 21149996 (Version 2)
Quarter: 2023Q1

REPORT INFORMATION
  Report Type: Spontaneous
  Country: US (occurrence: None)
  Receive Date: 20220729
  Receipt Date: 20230131
  Transmission Date: 20230418
  Serious: Yes (Hospitalization, Other)
  Sender: FDA-Public Use
  Company Number: 2022A264261

PATIENT
  Age: 74 Year
  Sex: Female
  Weight: 74.8 kg

DRUGS (1)
  1. FARXIGA [Suspect]
     Active Substance: DAPAGLIFLOZIN PROPANEDIOL
     Indication: Renal disorder
     Route: 048
     Dates: start: 2022

REACTIONS (25)
  - Dizziness [Recovered/Resolved]
  - Joint injury [Recovered/Resolved]
  - Fall [Recovered/Resolved]
  - Injury [Unknown]
  - Thrombosis [Unknown]
  - Fungal skin infection [Recovered/Resolved]
  - Myocardial infarction [Unknown]
  - Diarrhoea [Not Recovered/Not Resolved]
  - Constipation [Recovered/Resolved]
  - Somnolence [Unknown]
  - Fatigue [Unknown]
  - Asthenia [Unknown]
  - Loss of personal independence in daily activities [Unknown]
  - Gait disturbance [Unknown]
  - Cognitive disorder [Unknown]
  - Decreased appetite [Unknown]
  - Speech disorder [Unknown]
  - Ejection fraction decreased [Unknown]
  - Peripheral swelling [Unknown]
  - Motor dysfunction [Unknown]
  - Panic attack [Unknown]
  - Blood glucose increased [Unknown]
  - Faeces soft [Unknown]
  - Food aversion [Unknown]
  - Decreased interest [Unknown]

NARRATIVE: CASE EVENT DATE: 20220101
